FAERS Safety Report 6173061-X (Version None)
Quarter: 2009Q2

REPORT INFORMATION
  Report Type: 
  Country: None (occurrence: None)
  Receive Date: 20090424
  Receipt Date: 20090125
  Transmission Date: 20091009
  Serious: No
  Sender: FDA-Public Use
  Company Number: ALL1-2009-00188

PATIENT
  Age: 13 Year
  Sex: Male
  Weight: 49.9 kg

DRUGS (1)
  1. VYVANSE [Suspect]
     Indication: ATTENTION DEFICIT/HYPERACTIVITY DISORDER
     Dosage: 20 MG, 1X/DAY QD, ORAL
     Route: 048
     Dates: start: 20090125

REACTIONS (4)
  - FATIGUE [None]
  - HYPOAESTHESIA FACIAL [None]
  - MYDRIASIS [None]
  - OFF LABEL USE [None]
